FAERS Safety Report 8293266 (Version 2)
Quarter: 2012Q4

REPORT INFORMATION
  Report Type: 
  Country: AR (occurrence: AR)
  Receive Date: 20111215
  Receipt Date: 20120831
  Transmission Date: 20130627
  Serious: Yes (Death, Other)
  Sender: FDA-Public Use
  Company Number: PHHY2011AR108678

PATIENT
  Sex: Female

DRUGS (2)
  1. DIOVAN [Suspect]
     Indication: HYPERTENSION
     Dosage: 80 mg, 01 tablet daily
     Dates: start: 2009
  2. VENORUTON INTENS [Concomitant]
     Dosage: 500 mg, UNK
     Dates: start: 2009

REACTIONS (3)
  - Cerebrovascular accident [Fatal]
  - Movement disorder [Fatal]
  - Ischaemic stroke [None]
